FAERS Safety Report 22319039 (Version 1)
Quarter: 2023Q2

REPORT INFORMATION
  Report Type: Spontaneous
  Country: US (occurrence: None)
  Receive Date: 20230515
  Receipt Date: 20230515
  Transmission Date: 20230721
  Serious: Yes (Hospitalization)
  Sender: FDA-Public Use
  Company Number: 2023A108127

PATIENT
  Age: 22888 Day

DRUGS (1)
  1. FASENRA [Suspect]
     Active Substance: BENRALIZUMAB
     Dosage: 30MG/ML EVERY EIGHT WEEKS
     Route: 058
     Dates: start: 202205

REACTIONS (2)
  - Dyspnoea [Unknown]
  - Device malfunction [Unknown]

NARRATIVE: CASE EVENT DATE: 20230508
